FAERS Safety Report 5854261-2 (Version None)
Quarter: 2008Q3

REPORT INFORMATION
  Report Type: 
  Country: None (occurrence: None)
  Receive Date: 20080822
  Receipt Date: 20080812
  Transmission Date: 20090109
  Serious: Yes (Hospitalization)
  Sender: FDA-Public Use
  Company Number: NL-GILEAD-2007-0013654

PATIENT
  Sex: Male
  Weight: 68 kg

DRUGS (20)
  1. VIREAD [Suspect]
     Indication: HIV INFECTION
     Dates: end: 20060530
  2. TMC125 [Suspect]
     Route: 048
     Dates: start: 20060209
  3. TMC125 [Suspect]
     Route: 048
     Dates: start: 20051103, end: 20060208
  4. EPIVIR [Concomitant]
     Dates: start: 20060731
  5. KALETRA [Concomitant]
     Indication: HIV INFECTION
     Route: 048
  6. FUZEON [Concomitant]
     Indication: HIV INFECTION
     Route: 058
  7. CIPROFIBRATE [Concomitant]
     Indication: DYSLIPIDAEMIA
     Route: 048
  8. DECA-DURABOLIN [Concomitant]
     Indication: LIPODYSTROPHY ACQUIRED
     Route: 030
  9. LOPERAMIDE HCL [Concomitant]
     Indication: DIARRHOEA
     Route: 048
  10. OCULENTUM SIMPLEX [Concomitant]
     Indication: DRY EYE
     Route: 047
  11. LISINOPRIL [Concomitant]
     Indication: HYPERTENSION
     Route: 048
     Dates: start: 20051229
  12. LISINOPRIL [Concomitant]
     Indication: PROTEINURIA
  13. CIPROXEN [Concomitant]
     Route: 042
     Dates: start: 20060530
  14. PRIMPERAN INJ [Concomitant]
     Dates: start: 20060530
  15. NEXIUM [Concomitant]
     Dates: start: 20060629
  16. AZITHROMYCIN [Concomitant]
     Dates: start: 20060531
  17. PANTOZOL [Concomitant]
  18. SILDENAFIL CITRATE [Concomitant]
     Route: 048
  19. TEMAZEPAM [Concomitant]
     Indication: SLEEP DISORDER
     Route: 048
  20. BACTRIM [Concomitant]
     Route: 048
     Dates: start: 20060501

REACTIONS (5)
  - DIARRHOEA HAEMORRHAGIC [None]
  - METABOLIC ACIDOSIS [None]
  - RENAL FAILURE ACUTE [None]
  - RENAL IMPAIRMENT [None]
  - RENAL TUBULAR NECROSIS [None]
